FAERS Safety Report 13113036 (Version 1)
Quarter: 2017Q1

REPORT INFORMATION
  Report Type: Spontaneous
  Country: US (occurrence: US)
  Receive Date: 20170112
  Receipt Date: 20170112
  Transmission Date: 20170428
  Serious: No
  Sender: FDA-Public Use
  Company Number: None

PATIENT
  Sex: Male
  Weight: 96.75 kg

DRUGS (7)
  1. RISPERIDONE. [Concomitant]
     Active Substance: RISPERIDONE
  2. HUMIRA [Suspect]
     Active Substance: ADALIMUMAB
     Indication: PSORIASIS
     Dosage: QUANTITY:2 INJECTION(S);OTHER FREQUENCY:EVERY TWO WEEKS;?
     Route: 058
     Dates: start: 20120427
  3. IBUPROPHEN [Concomitant]
     Active Substance: IBUPROFEN
  4. KLONOPIN [Concomitant]
     Active Substance: CLONAZEPAM
  5. TYLENOL [Concomitant]
     Active Substance: ACETAMINOPHEN
  6. BUPROPION. [Concomitant]
     Active Substance: BUPROPION
  7. VALSARTAN. [Concomitant]
     Active Substance: VALSARTAN

REACTIONS (6)
  - Fall [None]
  - Osteonecrosis [None]
  - Loss of employment [None]
  - Muscle disorder [None]
  - Arthralgia [None]
  - Arthritis [None]
